FAERS Safety Report 9565943 (Version 1)
Quarter: 2013Q3

REPORT INFORMATION
  Report Type: Spontaneous
  Country: GB (occurrence: GB)
  Receive Date: 20130930
  Receipt Date: 20130930
  Transmission Date: 20140515
  Serious: Yes (Other)
  Sender: FDA-Public Use
  Company Number: GB-ACTAVIS-2013-17090

PATIENT
  Age: 22 Year
  Sex: Female
  Weight: 70 kg

DRUGS (6)
  1. DICLOFENAC (UNKNOWN) [Suspect]
     Indication: PRODUCT USED FOR UNKNOWN INDICATION
     Dosage: 50 MG, TID
     Route: 048
     Dates: start: 20130719, end: 20130722
  2. LAMOTRIGINE [Concomitant]
     Indication: EPILEPSY
     Dosage: 475 MG, DAILY (250 MG IN THE MORNING, 225 MG IN THE EVENING)
     Route: 048
  3. CLOBAZAM [Concomitant]
     Indication: PRODUCT USED FOR UNKNOWN INDICATION
     Dosage: 10 MG, TWICE
     Route: 048
  4. MULTIVITAMIN                       /00097801/ [Concomitant]
     Indication: INADEQUATE DIET
     Dosage: UNK
     Route: 048
  5. GAVISCON                           /00237601/ [Concomitant]
     Indication: PRODUCT USED FOR UNKNOWN INDICATION
     Dosage: UNKNOWN DOSE, AS NECESSARY
     Route: 065
  6. SENOKOT                            /00142201/ [Concomitant]
     Indication: PRODUCT USED FOR UNKNOWN INDICATION
     Dosage: UNKNOWN DOSE, AS NECESSARY
     Route: 065

REACTIONS (2)
  - Convulsion [Recovered/Resolved]
  - Condition aggravated [Recovered/Resolved]
